FAERS Safety Report 12966814 (Version 1)
Quarter: 2016Q4

REPORT INFORMATION
  Report Type: Spontaneous
  Country: US (occurrence: US)
  Receive Date: 20161119
  Receipt Date: 20161119
  Transmission Date: 20170207
  Serious: No
  Sender: FDA-Public Use
  Company Number: None

PATIENT
  Age: 13 Year
  Sex: Male

DRUGS (1)
  1. ADVATE [Suspect]
     Active Substance: ANTIHEMOPHILIC FACTOR, HUMAN RECOMBINANT
     Indication: FACTOR VIII DEFICIENCY
     Dosage: ADVATE 1000 UNITS - INTRAVENOUS - TIW + PRN
     Route: 042
     Dates: start: 20091013, end: 20161109

REACTIONS (1)
  - Seizure [None]

NARRATIVE: CASE EVENT DATE: 20161104
